FAERS Safety Report 7036701-9 (Version None)
Quarter: 2010Q4

REPORT INFORMATION
  Report Type: 
  Country: None (occurrence: None)
  Receive Date: 20101011
  Receipt Date: 20101004
  Transmission Date: 20110411
  Serious: No
  Sender: FDA-Public Use
  Company Number: US-BIOGENIDEC-2010BI034184

PATIENT
  Age: 75 Year
  Sex: Female

DRUGS (1)
  1. AVONEX [Suspect]
     Indication: MULTIPLE SCLEROSIS
     Route: 030
     Dates: start: 20080101

REACTIONS (9)
  - BREAST PAIN [None]
  - CONTUSION [None]
  - FALL [None]
  - FIBROCYSTIC BREAST DISEASE [None]
  - INFLUENZA LIKE ILLNESS [None]
  - INJECTION SITE INFLAMMATION [None]
  - INJECTION SITE WARMTH [None]
  - LOSS OF CONTROL OF LEGS [None]
  - MUSCULAR WEAKNESS [None]
